FAERS Safety Report 15065118 (Version 1)
Quarter: 2018Q3

REPORT INFORMATION
  Report Type: Spontaneous
  Country: CA (occurrence: CA)
  Receive Date: 20180626
  Receipt Date: 20180626
  Transmission Date: 20181010
  Serious: No
  Sender: FDA-Public Use
  Company Number: CA-BLUE EARTH DIAGNOSTICS LIMITED-BED-000012-2018

PATIENT
  Age: 58 Year
  Sex: Male

DRUGS (1)
  1. FLUCICLOVINE F?18 [Suspect]
     Active Substance: FLUCICLOVINE F-18
     Indication: POSITRON EMISSION TOMOGRAM
     Dosage: 8 MCI, UNK
     Route: 042

REACTIONS (1)
  - False negative investigation result [Recovered/Resolved]
